FAERS Safety Report 4263737-3 (Version None)
Quarter: 2004Q1

REPORT INFORMATION
  Report Type: 
  Country: None (occurrence: None)
  Receive Date: 20040102
  Receipt Date: 20031219
  Transmission Date: 20041129
  Serious: Yes (Death, Hospitalization, Other)
  Sender: FDA-Public Use
  Company Number: 2003111876

PATIENT
  Age: 79 Year
  Sex: Male
  Weight: 50 kg

DRUGS (5)
  1. DIFLUCAN [Suspect]
     Indication: HAEMORRHAGE
     Dosage: 200 MG (DAILY), INTRAVENOUS
     Route: 042
     Dates: start: 20030911, end: 20031008
  2. DIFLUCAN [Suspect]
     Indication: OESOPHAGEAL CANDIDIASIS
     Dosage: 200 MG (DAILY), INTRAVENOUS
     Route: 042
     Dates: start: 20030911, end: 20031008
  3. CLINDAMYCIN (CLINDAMYCIN) [Suspect]
     Indication: PNEUMONIA BACTERIAL
     Dosage: 1200 MG (BID), INTRAVENOUS
     Route: 042
     Dates: start: 20030917, end: 20031001
  4. VANCOMYCIN [Suspect]
     Indication: STAPHYLOCOCCAL INFECTION
     Dosage: INTRAVENOUS
     Route: 042
     Dates: start: 20030929, end: 20031010
  5. ARBEKACIN (ARBEKACIN) [Concomitant]

REACTIONS (16)
  - BLOOD AMYLASE INCREASED [None]
  - BLOOD CHLORIDE INCREASED [None]
  - BLOOD LACTATE DEHYDROGENASE INCREASED [None]
  - CANDIDIASIS [None]
  - DEHYDRATION [None]
  - DEPRESSED LEVEL OF CONSCIOUSNESS [None]
  - DIARRHOEA [None]
  - HAEMOLYTIC ANAEMIA [None]
  - HEPATIC FAILURE [None]
  - HEPATITIS [None]
  - ISCHAEMIA [None]
  - MENINGIOMA [None]
  - MULTI-ORGAN FAILURE [None]
  - PNEUMONIA [None]
  - RENAL IMPAIRMENT [None]
  - VIRAL INFECTION [None]
